FAERS Safety Report 10147195 (Version 1)
Quarter: 2014Q2

REPORT INFORMATION
  Report Type: Spontaneous
  Country: BR (occurrence: BR)
  Receive Date: 20140501
  Receipt Date: 20140501
  Transmission Date: 20141212
  Serious: Yes (Other)
  Sender: FDA-Public Use
  Company Number: PHHY2014BR051084

PATIENT
  Age: 57 Year
  Sex: Male
  Weight: 82 kg

DRUGS (5)
  1. SIMVASTATIN [Suspect]
     Dosage: 40 MG, QD
     Route: 048
     Dates: start: 201307
  2. ENALAPRIL [Suspect]
     Dosage: 10 MG, BID
  3. AAS [Concomitant]
     Indication: INFARCTION
     Dosage: 100 MG, BID
  4. MONOCORDIL [Concomitant]
     Dosage: 40 MG, BID
  5. AMLODIPINE BESILATE [Concomitant]
     Dosage: 5 MG, BID

REACTIONS (5)
  - Gamma-glutamyltransferase increased [Not Recovered/Not Resolved]
  - Chest discomfort [Not Recovered/Not Resolved]
  - Cardiac disorder [Not Recovered/Not Resolved]
  - Hyperhidrosis [Not Recovered/Not Resolved]
  - Malaise [Not Recovered/Not Resolved]
